FAERS Safety Report 9350069 (Version 2)
Quarter: 2013Q3

REPORT INFORMATION
  Report Type: Spontaneous
  Country: US (occurrence: US)
  Receive Date: 20130615
  Receipt Date: 20130705
  Transmission Date: 20140515
  Serious: No
  Sender: FDA-Public Use
  Company Number: US-009507513-1306USA006547

PATIENT
  Sex: Female
  Weight: 62.13 kg

DRUGS (1)
  1. AZASITE [Suspect]
     Indication: BLEPHARITIS
     Dosage: 1 DROP AT BEDTIME TO BOTH LOWER EYELIDS USING A FINGER
     Route: 047

REACTIONS (3)
  - Drug prescribing error [Unknown]
  - Product packaging quantity issue [Unknown]
  - No adverse event [Unknown]
